FAERS Safety Report 15465191 (Version 2)
Quarter: 2019Q1

REPORT INFORMATION
  Report Type: Spontaneous
  Country: IE (occurrence: IE)
  Receive Date: 20181004
  Receipt Date: 20190111
  Transmission Date: 20190417
  Serious: Yes (Life-Threatening, Other)
  Sender: FDA-Public Use
  Company Number: IE-JAZZ-2018-IE-008907

PATIENT
  Sex: Female

DRUGS (1)
  1. ERWINASE [Suspect]
     Active Substance: ASPARAGINASE ERWINIA CHRYSANTHEMI
     Indication: LYMPHOMA
     Dosage: 6000 IU/M2, EVERY OTHER DAY
     Dates: start: 20180428, end: 20180528

REACTIONS (1)
  - Anaphylactic reaction [Unknown]

NARRATIVE: CASE EVENT DATE: 20180528
